FAERS Safety Report 8986971 (Version 1)
Quarter: 2012Q4

REPORT INFORMATION
  Report Type: Spontaneous
  Country: US (occurrence: None)
  Receive Date: 20121213
  Receipt Date: 20121213
  Transmission Date: 20130627
  Serious: Yes (Other)
  Sender: FDA-Public Use
  Company Number: 89598

PATIENT
  Sex: Female

DRUGS (1)
  1. CAPSAICIN [Suspect]
     Indication: PAIN
     Route: 061
     Dates: start: 20121127

REACTIONS (3)
  - Blister [None]
  - Feeling hot [None]
  - Thermal burn [None]
